FAERS Safety Report 9904863 (Version 4)
Quarter: 2014Q2

REPORT INFORMATION
  Report Type: Spontaneous
  Country: JP (occurrence: JP)
  Receive Date: 20140218
  Receipt Date: 20140619
  Transmission Date: 20141212
  Serious: Yes (Hospitalization, Other)
  Sender: FDA-Public Use
  Company Number: JP-PFIZER INC-2014040477

PATIENT
  Age: 66 Year
  Sex: Female
  Weight: 56.9 kg

DRUGS (2)
  1. AROMASIN [Suspect]
     Indication: BREAST CANCER
     Dosage: 25 MG, 1X/DAY
     Route: 048
     Dates: start: 20140123, end: 20140210
  2. PREDONINE [Suspect]
     Indication: POLYARTHRITIS
     Dosage: 5 MG, 6X/DAY
     Route: 048
     Dates: start: 20140127, end: 20140206

REACTIONS (7)
  - Drug-induced liver injury [Recovering/Resolving]
  - Aspartate aminotransferase increased [Recovering/Resolving]
  - Alanine aminotransferase increased [Recovering/Resolving]
  - Blood bilirubin increased [Recovered/Resolved]
  - Polyarthritis [Unknown]
  - Malaise [Unknown]
  - Chromaturia [Unknown]
